FAERS Safety Report 14330926 (Version 3)
Quarter: 2018Q2

REPORT INFORMATION
  Report Type: Spontaneous
  Country: GB (occurrence: PL)
  Receive Date: 20171228
  Receipt Date: 20180413
  Transmission Date: 20180711
  Serious: Yes (Hospitalization, Other)
  Sender: FDA-Public Use
  Company Number: PL-TEVA-2017-PL-839773

PATIENT
  Age: 32 Year
  Sex: Male

DRUGS (16)
  1. GEMCITABINE [Suspect]
     Active Substance: GEMCITABINE\GEMCITABINE HYDROCHLORIDE
     Indication: HODGKIN^S DISEASE RECURRENT
     Dosage: 4 COURSES OF IGEV REGIMEN
     Route: 065
  2. VINBLASTINE [Suspect]
     Active Substance: VINBLASTINE
     Indication: HODGKIN^S DISEASE
     Route: 065
  3. BENDAMUSTINE HYDROCHLORIDE. [Suspect]
     Active Substance: BENDAMUSTINE HYDROCHLORIDE
     Indication: HODGKIN^S DISEASE RECURRENT
     Dosage: (4 COURSES OF BB REGIMEN)
     Route: 042
     Dates: start: 20160101, end: 201701
  4. CARBOPLATIN. [Suspect]
     Active Substance: CARBOPLATIN
     Indication: HODGKIN^S DISEASE RECURRENT
     Dosage: 3 COURSES OF ICE REGIMEN
     Route: 065
  5. DACARBAZINE. [Suspect]
     Active Substance: DACARBAZINE
     Indication: HODGKIN^S DISEASE
     Route: 065
  6. CEFTAZIDIME. [Concomitant]
     Active Substance: CEFTAZIDIME
     Indication: PNEUMONIA
     Dosage: 2 GRAM DAILY; 1 G, TWICE DAILY (2 G)
     Route: 065
     Dates: start: 20170406
  7. ETOPOSIDE. [Suspect]
     Active Substance: ETOPOSIDE
     Indication: HODGKIN^S DISEASE RECURRENT
     Dosage: 3 COURSES OF ICE REGIMEN
     Route: 065
  8. IFOSFAMIDE. [Suspect]
     Active Substance: IFOSFAMIDE
     Indication: HODGKIN^S DISEASE RECURRENT
     Dosage: 3 COURSES OF ICE REGIMEN
     Route: 065
  9. BLEOMYCIN [Suspect]
     Active Substance: BLEOMYCIN SULFATE
     Indication: HODGKIN^S DISEASE
     Dosage: 4 COURSES
     Route: 065
  10. LAKCID [Concomitant]
     Active Substance: LACTOBACILLUS ACIDOPHILUS
     Indication: PRODUCT USED FOR UNKNOWN INDICATION
     Dosage: 3 DF (3 X 1 CAPS)
     Route: 065
  11. AMIKACIN. [Concomitant]
     Active Substance: AMIKACIN
     Indication: PNEUMONIA
     Dosage: 2 GRAM DAILY; 2 G, ONCE DAILY (4 G)
     Route: 065
     Dates: start: 20170406
  12. VINORELBINE [Suspect]
     Active Substance: VINORELBINE\VINORELBINE TARTRATE
     Indication: HODGKIN^S DISEASE RECURRENT
     Dosage: 4 IGEV COURSES
     Route: 065
  13. BRENTUXIMAB [Suspect]
     Active Substance: BRENTUXIMAB VEDOTIN
     Indication: HODGKIN^S DISEASE RECURRENT
     Route: 065
     Dates: start: 20160101, end: 201701
  14. HOLOXAN [Suspect]
     Active Substance: IFOSFAMIDE
     Indication: HODGKIN^S DISEASE RECURRENT
     Dosage: 4 COURSES OF IGEV REGIMEN
     Route: 065
  15. DOXORUBICIN [Suspect]
     Active Substance: DOXORUBICIN
     Indication: HODGKIN^S DISEASE
     Dosage: 4 COURSES
     Route: 065
     Dates: start: 20121001
  16. VINBLASTINE SULFATE. [Suspect]
     Active Substance: VINBLASTINE SULFATE
     Indication: PRODUCT USED FOR UNKNOWN INDICATION
     Dosage: 4 COURSES
     Route: 065
     Dates: start: 20121001

REACTIONS (9)
  - Areflexia [Unknown]
  - Guillain-Barre syndrome [Recovering/Resolving]
  - Urinary retention [Unknown]
  - Demyelinating polyneuropathy [Recovering/Resolving]
  - Off label use [Unknown]
  - Hypoaesthesia [Unknown]
  - Hypotonia [Unknown]
  - Quadriplegia [Recovering/Resolving]
  - Peripheral nerve injury [Unknown]

NARRATIVE: CASE EVENT DATE: 20170405
